FAERS Safety Report 8045457-2 (Version None)
Quarter: 2012Q1

REPORT INFORMATION
  Report Type: 
  Country: None (occurrence: None)
  Receive Date: 20120111
  Receipt Date: 20120111
  Transmission Date: 20120608
  Serious: No
  Sender: FDA-Public Use
  Company Number: None

PATIENT
  Age: 48 Year
  Sex: Female
  Weight: 95.709 kg

DRUGS (1)
  1. LISINOPRIL AND HYDROCHLOROTHIAZIDE [Suspect]
     Indication: HYPERTENSION
     Dosage: 10-12.5 MG 1 DAILY
     Dates: start: 20110421

REACTIONS (1)
  - ALOPECIA [None]
